FAERS Safety Report 21750997 (Version 1)
Quarter: 2022Q4

REPORT INFORMATION
  Report Type: Spontaneous
  Country: FR (occurrence: FR)
  Receive Date: 20221219
  Receipt Date: 20221219
  Transmission Date: 20230113
  Serious: Yes (Hospitalization, Other)
  Sender: FDA-Public Use
  Company Number: FR-AFSSAPS-MP20223548

PATIENT
  Age: 64 Year
  Sex: Male
  Weight: 80 kg

DRUGS (4)
  1. OXALIPLATIN [Suspect]
     Active Substance: OXALIPLATIN
     Indication: Product used for unknown indication
     Route: 040
     Dates: start: 20220620, end: 20220816
  2. IRINOTECAN [Suspect]
     Active Substance: IRINOTECAN
     Indication: Colorectal cancer
     Route: 040
     Dates: start: 20220620, end: 20220816
  3. LEUCOVORIN CALCIUM [Suspect]
     Active Substance: LEUCOVORIN CALCIUM
     Indication: Colorectal cancer
     Dosage: 788 MILLIGRAM
     Route: 040
     Dates: start: 20220620, end: 20220816
  4. FLUOROURACIL [Suspect]
     Active Substance: FLUOROURACIL
     Indication: Colorectal cancer
     Dosage: 4725 MILLIGRAM
     Route: 040
     Dates: start: 20220620, end: 20220816

REACTIONS (2)
  - Diarrhoea haemorrhagic [Recovered/Resolved]
  - Decreased appetite [Recovered/Resolved]

NARRATIVE: CASE EVENT DATE: 20220821
